FAERS Safety Report 8906445 (Version 1)
Quarter: 2012Q4

REPORT INFORMATION
  Report Type: Spontaneous
  Country: DE (occurrence: None)
  Receive Date: 20121107
  Receipt Date: 20121107
  Transmission Date: 20130627
  Serious: Yes (Other)
  Sender: FDA-Public Use
  Company Number: E2B_00000443

PATIENT
  Age: 42 Year
  Sex: Male
  Weight: 81 kg

DRUGS (2)
  1. SERTRALINE [Suspect]
     Indication: DEPRESSION
     Route: 048
  2. SERTRALINE [Suspect]
     Indication: DEPRESSION
     Route: 048

REACTIONS (5)
  - Arrhythmia [None]
  - Dizziness [None]
  - Paraesthesia [None]
  - Ventricular tachycardia [None]
  - Cardiac arrest [None]
